FAERS Safety Report 7656187 (Version 2)
Quarter: 2012Q4

REPORT INFORMATION
  Report Type: 
  Country: US (occurrence: None)
  Receive Date: 20101013
  Receipt Date: 20120912
  Transmission Date: 20130627
  Serious: Yes (Death, Hospitalization, Other)
  Sender: FDA-Public Use
  Company Number: 2010AP002092

PATIENT
  Age: 67 Year
  Sex: Male

DRUGS (1)
  1. AMIODARONE HYDROCHLORIDE [Suspect]
     Indication: CARDIAC FAILURE CONGESTIVE

REACTIONS (18)
  - Hypothyroidism [None]
  - Myxoedema coma [None]
  - Haemoglobin decreased [None]
  - Blood creatinine increased [None]
  - Blood alkaline phosphatase increased [None]
  - Aspartate aminotransferase increased [None]
  - Prothrombin time prolonged [None]
  - Pulmonary oedema [None]
  - Pleural effusion [None]
  - General physical health deterioration [None]
  - Constipation [None]
  - Oedema [None]
  - Blood potassium increased [None]
  - Blood urea increased [None]
  - Blood alkaline phosphatase increased [None]
  - Blood albumin decreased [None]
  - Blood calcium decreased [None]
  - Cardiac failure congestive [None]
